FAERS Safety Report 5394656-7 (Version None)
Quarter: 2007Q3

REPORT INFORMATION
  Report Type: 
  Country: None (occurrence: None)
  Receive Date: 20070720
  Receipt Date: 20070710
  Transmission Date: 20080115
  Serious: Yes (Hospitalization, Disabling, Other)
  Sender: FDA-Public Use
  Company Number: 2007US-08533

PATIENT
  Age: 68 Year
  Sex: Male

DRUGS (3)
  1. GLIMEPIRIDE [Suspect]
     Indication: DIABETES MELLITUS
     Dosage: 4 MG, BID, ORAL
     Route: 048
     Dates: start: 20060301, end: 20060823
  2. CARDIZEM [Concomitant]
  3. ALTACE [Concomitant]

REACTIONS (6)
  - FALL [None]
  - HYPERTENSION [None]
  - IMPAIRED DRIVING ABILITY [None]
  - IMPAIRED WORK ABILITY [None]
  - INFUSION SITE EXTRAVASATION [None]
  - PANCREATITIS ACUTE [None]
